FAERS Safety Report 12206817 (Version 1)
Quarter: 2016Q1

REPORT INFORMATION
  Report Type: Spontaneous
  Country: US (occurrence: US)
  Receive Date: 20160324
  Receipt Date: 20160324
  Transmission Date: 20160526
  Serious: Yes (Hospitalization)
  Sender: FDA-Public Use
  Company Number: US-ROCHE-1730366

PATIENT
  Sex: Male

DRUGS (13)
  1. ALTEPLASE [Concomitant]
     Active Substance: ALTEPLASE
     Route: 042
  2. TYLENOL [Concomitant]
     Active Substance: ACETAMINOPHEN
     Dosage: VIA G TUBE
     Route: 065
  3. VASELINE PURE [Concomitant]
     Active Substance: PETROLATUM
     Route: 065
  4. ALBUTEROL. [Concomitant]
     Active Substance: ALBUTEROL
     Dosage: VIA NEBULIZER
     Route: 055
  5. CAPTOPRIL. [Concomitant]
     Active Substance: CAPTOPRIL
     Dosage: VIA G TUBE
     Route: 065
  6. MORPHINE [Concomitant]
     Active Substance: MORPHINE
     Route: 042
  7. PULMOZYME [Suspect]
     Active Substance: DORNASE ALFA
     Indication: CONGENITAL BRONCHOMALACIA
     Dosage: 1MG PER ML VIA NEBULIZER
     Route: 055
  8. PULMICORT TURBUHALER [Concomitant]
     Active Substance: BUDESONIDE
     Dosage: VIA NEBULIZER
     Route: 055
  9. SUCROSE [Concomitant]
     Active Substance: SUCROSE
     Dosage: VIA G TUBE
     Route: 065
  10. AQUAPHOR (UNITED STATES) [Concomitant]
     Indication: DERMATITIS DIAPER
  11. RANITIDINE [Concomitant]
     Active Substance: RANITIDINE\RANITIDINE HYDROCHLORIDE
     Dosage: VIA G TUBE
     Route: 065
  12. ANCEF (UNITED STATES) [Concomitant]
     Route: 042
  13. NYSTATIN. [Concomitant]
     Active Substance: NYSTATIN
     Dosage: VIA G TUBE
     Route: 065

REACTIONS (2)
  - Pneumothorax [Unknown]
  - Off label use [Unknown]
